FAERS Safety Report 9562570 (Version 1)
Quarter: 2013Q3

REPORT INFORMATION
  Report Type: Report from Study
  Country: US (occurrence: US)
  Receive Date: 20130927
  Receipt Date: 20130927
  Transmission Date: 20140515
  Serious: Yes (Death)
  Sender: FDA-Public Use
  Company Number: US-ABBVIE-13P-163-1151049-00

PATIENT
  Age: 90 Year
  Sex: Female

DRUGS (1)
  1. CREON [Suspect]
     Indication: PANCREATIC CARCINOMA
     Dosage: 3 CAPSULES 3 TIMES DAILY, AND 1 CAPSULE WITH SNACKS 2 TIMES DAILY
     Route: 048
     Dates: end: 20130902

REACTIONS (1)
  - Cardiac failure [Fatal]
